FAERS Safety Report 25054897 (Version 1)
Quarter: 2025Q1

REPORT INFORMATION
  Report Type: Spontaneous
  Country: US (occurrence: US)
  Receive Date: 20250308
  Receipt Date: 20250308
  Transmission Date: 20250408
  Serious: No
  Sender: ZYDUS PHARM
  Company Number: US-CADILA HEALTHCARE LIMITED-US-ZYDUS-111566

PATIENT

DRUGS (2)
  1. CYPROHEPTADINE HYDROCHLORIDE [Suspect]
     Active Substance: CYPROHEPTADINE HYDROCHLORIDE
     Indication: Appetite disorder
     Route: 065
     Dates: start: 2024
  2. CYPROHEPTADINE HYDROCHLORIDE [Suspect]
     Active Substance: CYPROHEPTADINE HYDROCHLORIDE
     Indication: Off label use

REACTIONS (2)
  - Drug ineffective for unapproved indication [Unknown]
  - Product use in unapproved indication [Unknown]

NARRATIVE: CASE EVENT DATE: 20240101
